FAERS Safety Report 16318507 (Version 1)
Quarter: 2019Q2

REPORT INFORMATION
  Report Type: Report from Study
  Country: US (occurrence: US)
  Receive Date: 20190516
  Receipt Date: 20190516
  Transmission Date: 20190711
  Serious: Yes (Disabling)
  Sender: FDA-Public Use
  Company Number: US-SA-2019SA109302

PATIENT
  Age: 61 Year
  Sex: Female

DRUGS (2)
  1. INSULIN GLARGINE [Suspect]
     Active Substance: INSULIN GLARGINE
     Dosage: 16 U, QD
     Route: 058
  2. INSULIN GLARGINE [Suspect]
     Active Substance: INSULIN GLARGINE
     Indication: TYPE 2 DIABETES MELLITUS
     Dosage: 100 U, HS
     Route: 058

REACTIONS (5)
  - Diabetic retinal oedema [Unknown]
  - Product dose omission [Unknown]
  - Disability [Unknown]
  - Blood glucose decreased [Unknown]
  - Diabetic retinopathy [Unknown]
